FAERS Safety Report 11856141 (Version 1)
Quarter: 2015Q4

REPORT INFORMATION
  Report Type: Spontaneous
  Country: US (occurrence: US)
  Receive Date: 20151221
  Receipt Date: 20151221
  Transmission Date: 20160305
  Serious: Yes (Other)
  Sender: FDA-Public Use
  Company Number: US-GE HEALTHCARE MEDICAL DIAGNOSTICS-OMPQ-PR-1512S-3168

PATIENT
  Age: 66 Year
  Sex: Female

DRUGS (2)
  1. OMNIPAQUE [Suspect]
     Active Substance: IOHEXOL
     Indication: DIAGNOSTIC PROCEDURE
  2. OMNIPAQUE [Suspect]
     Active Substance: IOHEXOL
     Indication: ABDOMINAL PAIN
     Route: 042
     Dates: start: 20151216, end: 20151216

REACTIONS (3)
  - Dyspnoea [Recovered/Resolved]
  - Pharyngeal oedema [Recovered/Resolved]
  - Hyperhidrosis [Recovered/Resolved]

NARRATIVE: CASE EVENT DATE: 20151216
